FAERS Safety Report 7004093-7 (Version None)
Quarter: 2010Q3

REPORT INFORMATION
  Report Type: 
  Country: None (occurrence: None)
  Receive Date: 20100920
  Receipt Date: 20100201
  Transmission Date: 20110219
  Serious: No
  Sender: FDA-Public Use
  Company Number: US-WYE-H13405510

PATIENT
  Sex: Male
  Weight: 77.18 kg

DRUGS (2)
  1. PRISTIQ [Suspect]
     Indication: ANXIETY
     Route: 048
     Dates: start: 20100128
  2. LEXAPRO [Suspect]
     Dosage: ^TAPERING OFF^

REACTIONS (1)
  - MUSCLE TWITCHING [None]
